FAERS Safety Report 6142109-0 (Version None)
Quarter: 2009Q2

REPORT INFORMATION
  Report Type: 
  Country: None (occurrence: None)
  Receive Date: 20090402
  Receipt Date: 20090324
  Transmission Date: 20091009
  Serious: Yes (Death, Hospitalization)
  Sender: FDA-Public Use
  Company Number: US-AMGEN-QUU339985

PATIENT
  Age: 58 Year
  Sex: Female

DRUGS (3)
  1. NEULASTA [Suspect]
     Indication: CHEMOTHERAPY
     Route: 065
     Dates: start: 20090225, end: 20090225
  2. DOCETAXEL [Suspect]
     Route: 042
  3. CYCLOPHOSPHAMIDE [Suspect]

REACTIONS (3)
  - DEATH [None]
  - DIARRHOEA [None]
  - SEPSIS [None]
